FAERS Safety Report 10233906 (Version 2)
Quarter: 2014Q3

REPORT INFORMATION
  Report Type: Spontaneous
  Country: IT (occurrence: None)
  Receive Date: 20140610
  Receipt Date: 20140717
  Transmission Date: 20150326
  Serious: Yes (Life-Threatening, Hospitalization)
  Sender: FDA-Public Use
  Company Number: 2014AP003272

PATIENT
  Age: 35 Year
  Sex: Female

DRUGS (4)
  1. QUETIAPINE [Suspect]
     Active Substance: QUETIAPINE
     Indication: DEPRESSION
     Route: 048
     Dates: start: 20140410, end: 20140501
  2. SERTRALINE [Suspect]
     Active Substance: SERTRALINE HYDROCHLORIDE
     Indication: DEPRESSION
     Route: 048
     Dates: start: 20140410, end: 20140501
  3. NOVORAPID [Concomitant]
     Active Substance: INSULIN ASPART
  4. LAMOTRIGINE. [Suspect]
     Active Substance: LAMOTRIGINE
     Indication: DEPRESSION
     Route: 048
     Dates: start: 20140410, end: 20140501

REACTIONS (5)
  - Secretion discharge [None]
  - Rash macular [None]
  - Oral disorder [None]
  - Toxic epidermal necrolysis [None]
  - Conjunctival abrasion [None]

NARRATIVE: CASE EVENT DATE: 201404
